FAERS Safety Report 4868877-3 (Version None)
Quarter: 2005Q4

REPORT INFORMATION
  Report Type: 
  Country: None (occurrence: None)
  Receive Date: 20051229
  Receipt Date: 20051019
  Transmission Date: 20060501
  Serious: Yes (Death)
  Sender: FDA-Public Use
  Company Number: US-MERCK-0510USA07932

PATIENT
  Age: 70 Year
  Sex: Male
  Weight: 112 kg

DRUGS (8)
  1. FUROSEMIDE [Concomitant]
     Route: 065
  2. ZOCOR [Concomitant]
     Route: 065
  3. KLOR-CON [Concomitant]
     Route: 065
  4. PROTONIX [Concomitant]
     Route: 065
  5. VIOXX [Suspect]
     Indication: ARTHRITIS
     Route: 048
     Dates: start: 20031219, end: 20040510
  6. VIOXX [Suspect]
     Indication: ARTHRALGIA
     Route: 048
     Dates: start: 20031219, end: 20040510
  7. AVANDIA [Concomitant]
     Route: 065
  8. LIPITOR [Concomitant]
     Route: 065

REACTIONS (2)
  - HYPERTENSION [None]
  - MYOCARDIAL INFARCTION [None]
